FAERS Safety Report 5935695-4 (Version None)
Quarter: 2008Q4

REPORT INFORMATION
  Report Type: 
  Country: None (occurrence: None)
  Receive Date: 20081030
  Receipt Date: 20081021
  Transmission Date: 20090506
  Serious: Yes (Hospitalization)
  Sender: FDA-Public Use
  Company Number: FR-WATSON-2008-06264

PATIENT
  Age: 55 Year
  Sex: Female

DRUGS (2)
  1. PROPRANOLOL [Suspect]
     Indication: UPPER GASTROINTESTINAL HAEMORRHAGE
     Dosage: 160 MG, DAILY
  2. VENLAFAXINE HCL [Suspect]
     Indication: DEPRESSION
     Dosage: 75 MG, DAILY

REACTIONS (2)
  - ACUTE RESPIRATORY FAILURE [None]
  - DRUG INTERACTION [None]
